FAERS Safety Report 5016702-2 (Version None)
Quarter: 2006Q2

REPORT INFORMATION
  Report Type: 
  Country: None (occurrence: None)
  Receive Date: 20060506
  Receipt Date: 20060519
  Transmission Date: 20061013
  Serious: Yes (Death, Hospitalization)
  Sender: FDA-Public Use
  Company Number: FR_050706877

PATIENT
  Age: 72 Year
  Sex: Female
  Weight: 45 kg

DRUGS (4)
  1. GEMZAR [Suspect]
     Indication: BLADDER CANCER
     Dosage: 1400 MG, OTHER, INTRAVENOUS
     Route: 042
     Dates: start: 20050629, end: 20050706
  2. CARBOPLATIN [Concomitant]
  3. ZOFRAN [Concomitant]
  4. SOLU-MEDROL [Concomitant]

REACTIONS (5)
  - COMA [None]
  - EPILEPSY [None]
  - LEUKOENCEPHALOPATHY [None]
  - RENAL FAILURE [None]
  - RESPIRATORY DISTRESS [None]
